FAERS Safety Report 4708336-1 (Version None)
Quarter: 2005Q3

REPORT INFORMATION
  Report Type: 
  Country: None (occurrence: None)
  Receive Date: 20050705
  Receipt Date: 20050705
  Transmission Date: 20060218
  Serious: No
  Sender: FDA-Public Use
  Company Number: None

PATIENT
  Age: 53 Year
  Sex: Female

DRUGS (3)
  1. ASPARAGINASE [Suspect]
  2. BENADRYL [Concomitant]
  3. TYLENOL [Concomitant]

REACTIONS (2)
  - PRURITUS [None]
  - RASH MACULAR [None]
